FAERS Safety Report 14715556 (Version 1)
Quarter: 2018Q2

REPORT INFORMATION
  Report Type: Spontaneous
  Country: GR (occurrence: GR)
  Receive Date: 20180404
  Receipt Date: 20180404
  Transmission Date: 20180711
  Serious: Yes (Hospitalization)
  Sender: FDA-Public Use
  Company Number: GR-MYLANLABS-2018M1020412

PATIENT
  Age: 43 Year
  Sex: Female

DRUGS (3)
  1. BUDESONIDE (+) FORMOTEROL FUMARATE [Suspect]
     Active Substance: BUDESONIDE\FORMOTEROL FUMARATE
     Indication: ASTHMA
     Dosage: 160/4.5 MICROGRAM TWICE DAILY
     Route: 055
  2. MONTELUKAST [Suspect]
     Active Substance: MONTELUKAST SODIUM
     Indication: ASTHMA
     Dosage: 10 MG, QD
     Route: 048
  3. BUDESONIDE (+) FORMOTEROL FUMARATE [Suspect]
     Active Substance: BUDESONIDE\FORMOTEROL FUMARATE
     Dosage: 320/9 MICROGRAM EVERY 8 HOURS
     Route: 055

REACTIONS (2)
  - No adverse event [Unknown]
  - Drug ineffective [Recovered/Resolved]
